FAERS Safety Report 14227764 (Version 1)
Quarter: 2017Q4

REPORT INFORMATION
  Report Type: Spontaneous
  Country: FR (occurrence: FR)
  Receive Date: 20171127
  Receipt Date: 20171127
  Transmission Date: 20180321
  Serious: Yes (Hospitalization)
  Sender: FDA-Public Use
  Company Number: FR-SA-2017SA235221

PATIENT
  Age: 77 Year
  Sex: Male

DRUGS (8)
  1. LOVENOX [Suspect]
     Active Substance: ENOXAPARIN SODIUM
     Indication: CEREBROVASCULAR ACCIDENT
     Route: 058
     Dates: start: 20170603, end: 20170608
  2. HEPARIN SODIUM PANPHARMA [Suspect]
     Active Substance: HEPARIN SODIUM
     Indication: CEREBROVASCULAR ACCIDENT
     Route: 042
     Dates: start: 20170531, end: 20170603
  3. BISOCE [Suspect]
     Active Substance: BISOPROLOL
     Route: 048
     Dates: start: 20170602, end: 20170608
  4. NEBIVOLOL. [Concomitant]
     Active Substance: NEBIVOLOL
  5. KARDEGIC [Suspect]
     Active Substance: ASPIRIN DL-LYSINE
     Indication: CEREBROVASCULAR ACCIDENT
     Route: 048
     Dates: start: 20170601, end: 20170607
  6. DIFFU K [Concomitant]
     Active Substance: POTASSIUM CHLORIDE
  7. OMNIPAQUE [Concomitant]
     Active Substance: IOHEXOL
  8. DUOPLAVIN [Concomitant]
     Active Substance: ASPIRIN\CLOPIDOGREL

REACTIONS (2)
  - Eosinophilia [Recovered/Resolved]
  - Toxic skin eruption [Recovered/Resolved]

NARRATIVE: CASE EVENT DATE: 20170606
